FAERS Safety Report 6864094-6 (Version None)
Quarter: 2010Q3

REPORT INFORMATION
  Report Type: 
  Country: None (occurrence: None)
  Receive Date: 20100721
  Receipt Date: 20080422
  Transmission Date: 20110219
  Serious: No
  Sender: FDA-Public Use
  Company Number: US-PFIZER INC-2008023613

PATIENT
  Sex: Female
  Weight: 67.3 kg

DRUGS (3)
  1. CHANTIX [Suspect]
     Indication: SMOKING CESSATION THERAPY
     Dates: start: 20080207, end: 20080306
  2. STOOL SOFTENER [Concomitant]
  3. VITAMINS [Concomitant]

REACTIONS (9)
  - ANXIETY [None]
  - DIZZINESS [None]
  - DRUG WITHDRAWAL SYNDROME [None]
  - GASTROENTERITIS VIRAL [None]
  - HYPERPHAGIA [None]
  - NERVOUSNESS [None]
  - PANIC REACTION [None]
  - VOMITING [None]
  - WEIGHT INCREASED [None]
